FAERS Safety Report 7125568-6 (Version None)
Quarter: 2010Q4

REPORT INFORMATION
  Report Type: 
  Country: None (occurrence: None)
  Receive Date: 20101129
  Receipt Date: 20101118
  Transmission Date: 20110411
  Serious: Yes (Death, Hospitalization)
  Sender: FDA-Public Use
  Company Number: JP-BAXTER-2010BH027540

PATIENT
  Sex: Male

DRUGS (2)
  1. ADVATE [Suspect]
     Indication: HAEMOSTASIS
     Route: 042
     Dates: start: 20100601
  2. ADVATE [Suspect]
     Indication: FACTOR VIII DEFICIENCY
     Route: 042
     Dates: start: 20100601

REACTIONS (1)
  - HEPATITIS C [None]
